FAERS Safety Report 25601735 (Version 1)
Quarter: 2025Q3

REPORT INFORMATION
  Report Type: Spontaneous
  Country: US (occurrence: None)
  Receive Date: 20250723
  Receipt Date: 20250723
  Transmission Date: 20251021
  Serious: Yes (Other)
  Sender: FDA-CTU
  Company Number: None

PATIENT
  Age: 41 Year
  Sex: Female
  Weight: 164 kg

DRUGS (2)
  1. MEDROXYPROGESTERONE [Suspect]
     Active Substance: MEDROXYPROGESTERONE
     Indication: Contraception
  2. NEXPLANON [Concomitant]
     Active Substance: ETONOGESTREL
     Dates: start: 20150727, end: 20171030

REACTIONS (1)
  - Meningioma [None]

NARRATIVE: CASE EVENT DATE: 20220411
